FAERS Safety Report 4274262-8 (Version None)
Quarter: 2004Q1

REPORT INFORMATION
  Report Type: 
  Country: None (occurrence: None)
  Receive Date: 20040115
  Receipt Date: 20040107
  Transmission Date: 20041129
  Serious: Yes (Other)
  Sender: FDA-Public Use
  Company Number: 2004001095

PATIENT
  Age: 60 Year
  Sex: Male
  Weight: 99.5 kg

DRUGS (17)
  1. NEURONTIN [Suspect]
     Indication: ILL-DEFINED DISORDER
     Dosage: UNKNOWN
  2. VALSARTAN (VALSARTAN) [Concomitant]
  3. AMLODIPINE [Concomitant]
  4. HYDROCHLOROTHIAZIDE [Concomitant]
  5. FENTANYL [Concomitant]
  6. VICODIN [Concomitant]
  7. CILOSTAZOL (CILOSTAZOL) [Concomitant]
  8. ACETYLSALICYLIC ACID SRT [Concomitant]
  9. METOCLOPRAMIDE [Concomitant]
  10. FUROSEMIDE [Concomitant]
  11. ESOMEPRAZOLE (ESOMEPRAZOLE) [Concomitant]
  12. NOVOLIN 20/80 (INSULIN HUMAN, INSULIN ISOPHANE, HUMAN BIOSYNTHETIC) [Concomitant]
  13. INSULIN [Concomitant]
  14. METOPROLOL SUCCINATE [Concomitant]
  15. DOCUSATE (DOCUSATE) [Concomitant]
  16. CHROMAGEN (ASCORBIC ACID, CYANOCOBALAMIN, FERROUS FUMARATE, STOMACH DE [Concomitant]
  17. PERI-COLACE [Concomitant]

REACTIONS (17)
  - ACUTE CORONARY SYNDROME [None]
  - AMPUTATION [None]
  - ANGINA UNSTABLE [None]
  - ATRIOVENTRICULAR BLOCK [None]
  - CARDIAC VALVE SCLEROSIS [None]
  - CARDIO-RESPIRATORY ARREST [None]
  - CARDIOMEGALY [None]
  - DEHYDRATION [None]
  - DRUG TOXICITY [None]
  - GANGRENE [None]
  - GASTROENTERITIS [None]
  - MYALGIA [None]
  - OSTEOMYELITIS [None]
  - PERIPHERAL VASCULAR DISORDER [None]
  - PNEUMONIA [None]
  - SKIN DISORDER [None]
  - SKIN ULCER [None]
